FAERS Safety Report 11827221 (Version 2)
Quarter: 2019Q4

REPORT INFORMATION
  Report Type: Spontaneous
  Country: GR (occurrence: GR)
  Receive Date: 20151211
  Receipt Date: 20191226
  Transmission Date: 20200122
  Serious: Yes (Hospitalization, Other)
  Sender: FDA-Public Use
  Company Number: GR-MYLANLABS-2015M1044250

PATIENT
  Age: 33 Year
  Sex: Male

DRUGS (14)
  1. ALPRAZOLAM. [Interacting]
     Active Substance: ALPRAZOLAM
     Indication: MAJOR DEPRESSION
     Dosage: 0,5 MG/TID-THREE TIMES A DAY
     Route: 065
  2. RISPERIDONE. [Interacting]
     Active Substance: RISPERIDONE
     Indication: MAJOR DEPRESSION
     Dosage: 4 MG/OD
     Route: 065
  3. CLOMIPRAMINE [Suspect]
     Active Substance: CLOMIPRAMINE
     Indication: DEPRESSION
     Dosage: 10 MG, 2X/DAY
     Route: 065
  4. CLOMIPRAMINE [Interacting]
     Active Substance: CLOMIPRAMINE
     Indication: SUICIDAL BEHAVIOUR
  5. MIRTAZAPINE. [Interacting]
     Active Substance: MIRTAZAPINE
     Dosage: 45 MG, 1X/DAY
     Route: 065
  6. MIRTAZAPINE. [Interacting]
     Active Substance: MIRTAZAPINE
     Dosage: 30 MG/ OD-ONCE A DAY
     Route: 065
  7. VENLAFAXINE [Concomitant]
     Active Substance: VENLAFAXINE HYDROCHLORIDE
     Indication: MAJOR DEPRESSION
     Dosage: 75 MG, 1X/DAY
     Route: 065
  8. RISPERIDONE. [Interacting]
     Active Substance: RISPERIDONE
     Indication: DEPRESSION
     Dosage: 2 MG, 1X/DAY
     Route: 065
  9. RISPERIDONE. [Interacting]
     Active Substance: RISPERIDONE
     Dosage: LOW DOSE, NOT MORE THAN 2 MG/DAY AND FOR ABOUT 1 MONTH EACH TIME
     Route: 065
  10. MIRTAZAPINE. [Interacting]
     Active Substance: MIRTAZAPINE
     Dosage: 45 MG/OD
     Route: 065
  11. VENLAFAXINE [Concomitant]
     Active Substance: VENLAFAXINE HYDROCHLORIDE
     Dosage: 75 MG/OD
  12. CLOMIPRAMINE [Interacting]
     Active Substance: CLOMIPRAMINE
     Indication: SUICIDAL IDEATION
     Dosage: UNK
     Route: 065
  13. CLOMIPRAMINE [Interacting]
     Active Substance: CLOMIPRAMINE
     Indication: ANXIETY
     Dosage: 10 MG/BID-TWICE A DAY
  14. MIRTAZAPINE. [Interacting]
     Active Substance: MIRTAZAPINE
     Indication: MAJOR DEPRESSION
     Dosage: 30 MG, 1X/DAY
     Route: 065

REACTIONS (4)
  - Toxicity to various agents [Recovered/Resolved]
  - Drug interaction [Recovered/Resolved]
  - Neuroleptic malignant syndrome [Recovered/Resolved]
  - Serotonin syndrome [Recovered/Resolved]
